FAERS Safety Report 9174222 (Version 5)
Quarter: 2013Q2

REPORT INFORMATION
  Report Type: Spontaneous
  Country: US (occurrence: US)
  Receive Date: 20130320
  Receipt Date: 20130610
  Transmission Date: 20140414
  Serious: No
  Sender: FDA-Public Use
  Company Number: US-PFIZER INC-2013091482

PATIENT
  Age: 55 Year
  Sex: Female
  Weight: 78.01 kg

DRUGS (8)
  1. NEURONTIN [Suspect]
     Indication: NERVE INJURY
     Dosage: 800 MG, 3X/DAY
  2. NEURONTIN [Suspect]
     Dosage: 800 MG, 2X/DAY
  3. NEURONTIN [Suspect]
     Dosage: 800MG MORNING AND EVENING AND HALF CAPSULE OF 800MG IN THE AFTERNOON
     Dates: start: 2013
  4. ICY HOT CREAM [Suspect]
     Indication: PAIN IN EXTREMITY
     Dosage: UNK
  5. JANUVIA [Concomitant]
     Indication: DIABETES MELLITUS
     Dosage: 100 MG, 1X/DAY
  6. METFORMIN [Concomitant]
     Indication: DIABETES MELLITUS
     Dosage: 1000 MG, 2X/DAY
  7. GLIPIZIDE [Concomitant]
     Indication: DIABETES MELLITUS
     Dosage: 5 MG, 1X/DAY
  8. LISINOPRIL [Concomitant]
     Indication: HYPERTENSION
     Dosage: 2.5 MG, 1X/DAY

REACTIONS (3)
  - Dizziness [Recovered/Resolved]
  - Drug intolerance [Unknown]
  - Drug ineffective [Unknown]
